FAERS Safety Report 13574901 (Version 6)
Quarter: 2018Q1

REPORT INFORMATION
  Report Type: Spontaneous
  Country: US (occurrence: US)
  Receive Date: 20170523
  Receipt Date: 20180321
  Transmission Date: 20180508
  Serious: Yes (Disabling, Other)
  Sender: FDA-Public Use
  Company Number: US-CELGENEUS-USA-2017011582

PATIENT
  Age: 76 Year
  Sex: Female
  Weight: 77.18 kg

DRUGS (2)
  1. POMALYST [Suspect]
     Active Substance: POMALIDOMIDE
     Indication: PLASMA CELL MYELOMA
     Dosage: 2 MILLIGRAM
     Route: 048
     Dates: start: 201609
  2. POMALYST [Suspect]
     Active Substance: POMALIDOMIDE
     Dosage: 3 MILLIGRAM
     Route: 048
     Dates: start: 201802

REACTIONS (4)
  - Fall [Unknown]
  - Dizziness [Not Recovered/Not Resolved]
  - Cerebrovascular accident [Unknown]
  - Balance disorder [Unknown]

NARRATIVE: CASE EVENT DATE: 20180303
